FAERS Safety Report 5712059-X (Version None)
Quarter: 2008Q2

REPORT INFORMATION
  Report Type: 
  Country: None (occurrence: None)
  Receive Date: 20080417
  Receipt Date: 20080409
  Transmission Date: 20081010
  Serious: Yes (Hospitalization)
  Sender: FDA-Public Use
  Company Number: 2007SP020732

PATIENT
  Age: 20 Year
  Sex: Female
  Weight: 46 kg

DRUGS (8)
  1. PEG-INTRON [Suspect]
     Indication: HEPATITIS C
     Dosage: 80 MCG; QW; SC
     Route: 058
     Dates: start: 20070804, end: 20071006
  2. REBETOL [Suspect]
     Indication: HEPATITIS C
     Dosage: 600 MG; QD; PO; 400 MG; QD; PO
     Route: 048
     Dates: start: 20070804, end: 20070914
  3. REBETOL [Suspect]
     Indication: HEPATITIS C
     Dosage: 600 MG; QD; PO; 400 MG; QD; PO
     Route: 048
     Dates: start: 20070915, end: 20071011
  4. RABEPRAZOLE SODIUM [Concomitant]
  5. GASMOTIN [Concomitant]
  6. CALONAL [Concomitant]
  7. TAKEPRON OD [Concomitant]
  8. ALTAT [Concomitant]

REACTIONS (3)
  - ABASIA [None]
  - GAIT DISTURBANCE [None]
  - HYPOAESTHESIA [None]
